FAERS Safety Report 24915282 (Version 1)
Quarter: 2025Q1

REPORT INFORMATION
  Report Type: Spontaneous
  Country: CA (occurrence: CA)
  Receive Date: 20250203
  Receipt Date: 20250203
  Transmission Date: 20250409
  Serious: Yes (Life-Threatening)
  Sender: PHARMACOSMOS A/S
  Company Number: None

PATIENT
  Age: 66 Year
  Sex: Male

DRUGS (6)
  1. ATENOLOL [Concomitant]
     Active Substance: ATENOLOL
  2. HYDROCHLOROTHIAZIDE [Concomitant]
     Active Substance: HYDROCHLOROTHIAZIDE
  3. METFORMIN [Concomitant]
     Active Substance: METFORMIN HYDROCHLORIDE
  4. DILANTIN [Concomitant]
     Active Substance: PHENYTOIN
  5. MONOFERRIC [Suspect]
     Active Substance: FERRIC DERISOMALTOSE
     Indication: Product used for unknown indication
  6. PERINDOPRIL [Concomitant]
     Active Substance: PERINDOPRIL

REACTIONS (3)
  - Cardiac arrest [Not Recovered/Not Resolved]
  - Urticaria [Not Recovered/Not Resolved]
  - Blood glucose increased [Not Recovered/Not Resolved]
